FAERS Safety Report 16239230 (Version 1)
Quarter: 2019Q2

REPORT INFORMATION
  Report Type: Spontaneous
  Country: US (occurrence: US)
  Receive Date: 20190425
  Receipt Date: 20190425
  Transmission Date: 20190711
  Serious: Yes (Hospitalization)
  Sender: FDA-Public Use
  Company Number: US-TEVA-2019-US-1041271

PATIENT
  Age: 29 Year
  Sex: Male

DRUGS (2)
  1. TRENBOLONE [Suspect]
     Active Substance: TRENBOLONE
     Indication: DRUG ABUSE
     Dosage: 1.5CC
     Route: 058
  2. TESTOSTERONE. [Suspect]
     Active Substance: TESTOSTERONE
     Indication: DRUG ABUSE
     Dosage: 2 CC
     Route: 058

REACTIONS (2)
  - Drug abuse [Recovering/Resolving]
  - Acne conglobata [Recovered/Resolved with Sequelae]
